FAERS Safety Report 4492621-5 (Version None)
Quarter: 2004Q4

REPORT INFORMATION
  Report Type: 
  Country: None (occurrence: None)
  Receive Date: 20041103
  Receipt Date: 20040608
  Transmission Date: 20050328
  Serious: Yes (Hospitalization, Other)
  Sender: FDA-Public Use
  Company Number: 410640

PATIENT
  Age: 13 Year
  Sex: Male
  Weight: 52.209 kg

DRUGS (3)
  1. 12 HOUR PSEUDOEPHED, 120 MG, PERRIGO COMPANY [Suspect]
     Indication: NASOPHARYNGITIS
     Dosage: ONE CAPLET, ONCE
     Dates: start: 20040526, end: 20040526
  2. FLUTICASONE PROPIONATE [Concomitant]
  3. ROBITUSSIN DM [Concomitant]

REACTIONS (5)
  - DIZZINESS [None]
  - DYSPNOEA [None]
  - HEART RATE INCREASED [None]
  - RESPIRATORY RATE INCREASED [None]
  - VOMITING [None]
